FAERS Safety Report 7281578-X (Version None)
Quarter: 2011Q1

REPORT INFORMATION
  Report Type: 
  Country: None (occurrence: None)
  Receive Date: 20110208
  Receipt Date: 20110131
  Transmission Date: 20110831
  Serious: Yes (Hospitalization, Other)
  Sender: FDA-Public Use
  Company Number: PHHY2010US69032

PATIENT
  Sex: Female

DRUGS (4)
  1. METOPROLOL TARTRATE [Suspect]
     Dosage: UNK
  2. FORTEO [Suspect]
     Indication: OSTEOPOROSIS
     Dosage: UNK
  3. CITRACAL [Concomitant]
     Dosage: UNK
  4. BIOTIN [Suspect]
     Dosage: UNK

REACTIONS (6)
  - EPISTAXIS [None]
  - CHOKING [None]
  - CEREBROVASCULAR ACCIDENT [None]
  - HAEMOPTYSIS [None]
  - HYPERTENSION [None]
  - ALOPECIA [None]
